FAERS Safety Report 6443167-6 (Version None)
Quarter: 2009Q4

REPORT INFORMATION
  Report Type: 
  Country: None (occurrence: None)
  Receive Date: 20091117
  Receipt Date: 20091110
  Transmission Date: 20100525
  Serious: Yes (Other)
  Sender: FDA-Public Use
  Company Number: B0603986A

PATIENT
  Age: 68 Year
  Sex: Female

DRUGS (1)
  1. ARIXTRA [Suspect]
     Indication: DRUG USE FOR UNKNOWN INDICATION
     Route: 058

REACTIONS (3)
  - HAEMORRHAGE SUBCUTANEOUS [None]
  - POST PROCEDURAL HAEMORRHAGE [None]
  - WOUND DECOMPOSITION [None]
